FAERS Safety Report 12453556 (Version 3)
Quarter: 2016Q4

REPORT INFORMATION
  Report Type: Spontaneous
  Country: US (occurrence: US)
  Receive Date: 20160609
  Receipt Date: 20161114
  Transmission Date: 20170207
  Serious: No
  Sender: FDA-Public Use
  Company Number: US-GLAXOSMITHKLINE-A0691457A

PATIENT
  Age: 70 Year
  Sex: Male

DRUGS (4)
  1. BENICAR HCT [Concomitant]
     Active Substance: HYDROCHLOROTHIAZIDE\OLMESARTAN MEDOXOMIL
  2. ADVAIR DISKUS [Suspect]
     Active Substance: FLUTICASONE PROPIONATE\SALMETEROL XINAFOATE
     Indication: ASTHMA
     Dosage: 250/50 MCG
  3. COMBIVENT [Concomitant]
     Active Substance: ALBUTEROL SULFATE\IPRATROPIUM BROMIDE
  4. ADVAIR DISKUS [Suspect]
     Active Substance: FLUTICASONE PROPIONATE\SALMETEROL XINAFOATE
     Indication: EMPHYSEMA
     Dosage: 500/50 MCG
     Route: 055
     Dates: start: 200211

REACTIONS (5)
  - Weight increased [Not Recovered/Not Resolved]
  - Therapeutic response decreased [Unknown]
  - Product quality issue [Unknown]
  - Foreign body [Unknown]
  - Drug ineffective [Unknown]

NARRATIVE: CASE EVENT DATE: 20071002
